FAERS Safety Report 24736836 (Version 1)
Quarter: 2024Q4

REPORT INFORMATION
  Report Type: Spontaneous
  Country: CN (occurrence: CN)
  Receive Date: 20241216
  Receipt Date: 20241216
  Transmission Date: 20250115
  Serious: Yes (Hospitalization, Other)
  Sender: Haleon PLC
  Company Number: CN-HALEON-2215049

PATIENT
  Age: 53 Year
  Sex: Male

DRUGS (3)
  1. DICLOFENAC SODIUM [Suspect]
     Active Substance: DICLOFENAC SODIUM
     Indication: Ankylosing spondylitis
     Dosage: DOSAGE FORM: ENTERIC-COATED TABLETS
     Route: 048
     Dates: start: 20241108, end: 20241108
  2. LORATADINE [Suspect]
     Active Substance: LORATADINE
     Indication: Erythema
     Route: 048
  3. LORATADINE [Suspect]
     Active Substance: LORATADINE
     Indication: Pruritus

REACTIONS (9)
  - Anaphylactic shock [Recovering/Resolving]
  - Laryngeal obstruction [Recovering/Resolving]
  - Pruritus [Recovering/Resolving]
  - Dyspnoea [Recovering/Resolving]
  - Chest discomfort [Recovering/Resolving]
  - Dizziness [Recovering/Resolving]
  - Drug eruption [Recovering/Resolving]
  - Tongue oedema [Recovering/Resolving]
  - Erythema [Recovering/Resolving]

NARRATIVE: CASE EVENT DATE: 20241108
